FAERS Safety Report 7474585-5 (Version None)
Quarter: 2011Q1

REPORT INFORMATION
  Report Type: 
  Country: None (occurrence: None)
  Receive Date: 20110302
  Receipt Date: 20100709
  Transmission Date: 20110831
  Serious: Yes (Life-Threatening, Hospitalization)
  Sender: FDA-Public Use
  Company Number: 163-21880-10061550

PATIENT
  Age: 71 Year
  Sex: Female

DRUGS (8)
  1. ENALAPRIL MALEATE [Concomitant]
  2. HYDROCHLOROTHIAZIDE [Concomitant]
  3. TEKTURNA [Concomitant]
  4. LABETALOL HCL [Concomitant]
  5. PROCRIT [Concomitant]
  6. REVLIMID [Suspect]
     Indication: MULTIPLE MYELOMA
     Dosage: 25 MG, DAILY 2 WEEKS ON 1 WEEK OFF, PO
     Route: 048
     Dates: start: 20100505, end: 20100519
  7. COUMADIN [Concomitant]
  8. FERROUS SULFATE TAB [Concomitant]

REACTIONS (5)
  - DEHYDRATION [None]
  - URINARY TRACT INFECTION [None]
  - EAR INFECTION [None]
  - CLOSTRIDIUM COLITIS [None]
  - RENAL FAILURE [None]
